FAERS Safety Report 7725737-8 (Version None)
Quarter: 2011Q3

REPORT INFORMATION
  Report Type: 
  Country: None (occurrence: None)
  Receive Date: 20110830
  Receipt Date: 20110809
  Transmission Date: 20111222
  Serious: Yes (Death)
  Sender: FDA-Public Use
  Company Number: NES-AE-11-001

PATIENT
  Age: 55 Year
  Sex: Female

DRUGS (17)
  1. MULTI-VITAMIN [Concomitant]
  2. VITAMIN B-12 [Concomitant]
  3. FELODIPINE [Concomitant]
  4. SPIRIVA [Concomitant]
  5. LIDODERM [Concomitant]
  6. AMITRIPTYLINE HCL [Suspect]
     Indication: DEPRESSION
     Dosage: 25MG-1-2 TABLETS-QHS
     Dates: start: 20080409
  7. LISINOPRIL [Concomitant]
  8. FOSAMAX [Concomitant]
  9. IBUPROFEN [Concomitant]
  10. HYDROCHLOROTHIAZIDE [Concomitant]
  11. NICOTROL [Concomitant]
  12. LIPITOR [Concomitant]
  13. DOXAZOSIN MESYLATE [Concomitant]
  14. MORPHINE SULFATE [Suspect]
     Indication: PAIN
     Dosage: 15MG-BID-ORAL
     Route: 048
     Dates: start: 20080401
  15. ATENOLOL [Concomitant]
  16. PAROXETINE HCL [Concomitant]
  17. PROAIR HFR [Concomitant]

REACTIONS (1)
  - TOXICITY TO VARIOUS AGENTS [None]
